FAERS Safety Report 6096248-3 (Version None)
Quarter: 2009Q1

REPORT INFORMATION
  Report Type: 
  Country: None (occurrence: None)
  Receive Date: 20090227
  Receipt Date: 20081020
  Transmission Date: 20090719
  Serious: No
  Sender: FDA-Public Use
  Company Number: A0752520A

PATIENT
  Age: 72 Year
  Sex: Male

DRUGS (9)
  1. LAMICTAL [Suspect]
     Dosage: 100MG TWICE PER DAY
     Route: 048
     Dates: start: 20080430
  2. LIPITOR [Concomitant]
  3. TIZANIDINE HCL [Concomitant]
  4. LEXAPRO [Concomitant]
  5. PROVIGIL [Concomitant]
  6. OMEPRAZOLE [Concomitant]
  7. METOPROLOL [Concomitant]
  8. ASCORBIC ACID [Concomitant]
  9. MULTI-VITAMIN [Concomitant]

REACTIONS (3)
  - BRONCHITIS [None]
  - INCREASED UPPER AIRWAY SECRETION [None]
  - SLEEP DISORDER [None]
